FAERS Safety Report 5834763-5 (Version None)
Quarter: 2008Q3

REPORT INFORMATION
  Report Type: 
  Country: None (occurrence: None)
  Receive Date: 20080801
  Receipt Date: 20080721
  Transmission Date: 20090109
  Serious: Yes (Hospitalization)
  Sender: FDA-Public Use
  Company Number: GXKR2008CA06863

PATIENT
  Age: 62 Year
  Sex: Female

DRUGS (2)
  1. CLOZAPINE [Suspect]
     Indication: BIPOLAR DISORDER
     Dosage: 400 MG, QD
     Dates: start: 20061124
  2. CLOZAPINE [Suspect]
     Indication: MANIA
     Dosage: 400 MG, QD
     Dates: start: 20061124

REACTIONS (7)
  - ABDOMINAL DISCOMFORT [None]
  - BLOOD POTASSIUM DECREASED [None]
  - BLOOD SODIUM INCREASED [None]
  - COLITIS MICROSCOPIC [None]
  - DEHYDRATION [None]
  - DRUG INEFFECTIVE [None]
  - VOMITING [None]
